FAERS Safety Report 10648842 (Version 1)
Quarter: 2014Q4

REPORT INFORMATION
  Report Type: Report from Study
  Country: NL (occurrence: NL)
  Receive Date: 20141212
  Receipt Date: 20141212
  Transmission Date: 20150529
  Serious: Yes (Hospitalization)
  Sender: FDA-Public Use
  Company Number: NL-AMGEN-NLDSL2014096357

PATIENT
  Age: 63 Year
  Sex: Male

DRUGS (2)
  1. NEULASTA [Concomitant]
     Active Substance: PEGFILGRASTIM
     Dosage: 6 MG, UNK
     Route: 058
     Dates: start: 20141008
  2. ARANESP [Suspect]
     Active Substance: DARBEPOETIN ALFA
     Indication: ANAEMIA
     Dosage: 100 MUG, QWK
     Route: 058
     Dates: start: 20141003

REACTIONS (3)
  - Blood count abnormal [Unknown]
  - Heart rate increased [Unknown]
  - Hypotension [Unknown]
